FAERS Safety Report 11329258 (Version 1)
Quarter: 2015Q3

REPORT INFORMATION
  Report Type: Spontaneous
  Country: FR (occurrence: FR)
  Receive Date: 20150803
  Receipt Date: 20150803
  Transmission Date: 20151125
  Serious: Yes (Hospitalization)
  Sender: FDA-Public Use
  Company Number: FR-ORION CORPORATION ORION PHARMA-ENTC2015-0411

PATIENT
  Age: 80 Year
  Sex: Male

DRUGS (9)
  1. TAHOR [Concomitant]
     Active Substance: ATORVASTATIN CALCIUM
     Route: 065
  2. INIPOMP [Concomitant]
     Active Substance: PANTOPRAZOLE SODIUM
     Route: 065
  3. STALEVO [Suspect]
     Active Substance: CARBIDOPA\ENTACAPONE\LEVODOPA
     Indication: PARKINSON^S DISEASE
     Dosage: 50/12.5/200 MG
     Route: 065
     Dates: start: 201501
  4. KARDEGIC [Concomitant]
     Active Substance: ASPIRIN LYSINE
     Route: 065
  5. SPIRONOLACTONE. [Concomitant]
     Active Substance: SPIRONOLACTONE
     Route: 065
  6. XALATAN [Concomitant]
     Active Substance: LATANOPROST
     Route: 065
  7. CARTEOL [Concomitant]
     Active Substance: CARTEOLOL
     Route: 065
  8. OFLOCET [Suspect]
     Active Substance: OFLOXACIN
     Indication: PROSTATITIS
     Route: 048
     Dates: start: 20150523, end: 20150531
  9. TEMERIT [Concomitant]
     Active Substance: NEBIVOLOL
     Route: 065

REACTIONS (7)
  - Haematoma [Unknown]
  - Dermabrasion [Unknown]
  - Hyponatraemia [Recovering/Resolving]
  - Hyperthermia [Unknown]
  - Fall [Unknown]
  - Generalised tonic-clonic seizure [Unknown]
  - Coma [Recovered/Resolved]

NARRATIVE: CASE EVENT DATE: 201506
